FAERS Safety Report 9721522 (Version 1)
Quarter: 2013Q4

REPORT INFORMATION
  Report Type: Report from Study
  Country: BR (occurrence: BR)
  Receive Date: 20131130
  Receipt Date: 20131130
  Transmission Date: 20140711
  Serious: Yes (Hospitalization)
  Sender: FDA-Public Use
  Company Number: BR-US-EMD SERONO, INC.-7252264

PATIENT
  Sex: Female

DRUGS (5)
  1. REBIF [Suspect]
     Indication: RELAPSING-REMITTING MULTIPLE SCLEROSIS
     Dates: start: 20110519
  2. MICARDIS [Concomitant]
     Indication: PRODUCT USED FOR UNKNOWN INDICATION
  3. AAS [Concomitant]
     Indication: PRODUCT USED FOR UNKNOWN INDICATION
  4. DROPERIDOL [Concomitant]
     Indication: PRODUCT USED FOR UNKNOWN INDICATION
  5. TYLENOL                            /00020001/ [Concomitant]
     Indication: PRODUCT USED FOR UNKNOWN INDICATION

REACTIONS (4)
  - Bone lesion [Unknown]
  - Memory impairment [Unknown]
  - Injection site haemorrhage [Unknown]
  - Chills [Unknown]
